FAERS Safety Report 14926419 (Version 1)
Quarter: 2018Q2

REPORT INFORMATION
  Report Type: Other
  Country: DE (occurrence: DE)
  Receive Date: 20180523
  Receipt Date: 20180523
  Transmission Date: 20180711
  Serious: Yes (Other)
  Sender: FDA-Public Use
  Company Number: DE-LUPIN PHARMACEUTICALS INC.-2018-00974

PATIENT
  Sex: Female

DRUGS (2)
  1. QUENTIAX [Suspect]
     Active Substance: QUETIAPINE FUMARATE
     Indication: PRODUCT USED FOR UNKNOWN INDICATION
     Dosage: 7500 MG, SINGLE DOSE
     Route: 048
     Dates: start: 201801, end: 201801
  2. QUETIAPINE. [Suspect]
     Active Substance: QUETIAPINE
     Indication: PRODUCT USED FOR UNKNOWN INDICATION
     Dosage: 5000 MG, SINGLE DOSE
     Route: 048
     Dates: start: 201801, end: 201801

REACTIONS (4)
  - Gait disturbance [Unknown]
  - Exposure during pregnancy [Unknown]
  - Suicide attempt [Unknown]
  - Intentional overdose [Unknown]

NARRATIVE: CASE EVENT DATE: 201801
